FAERS Safety Report 5999774-8 (Version None)
Quarter: 2008Q4

REPORT INFORMATION
  Report Type: 
  Country: None (occurrence: None)
  Receive Date: 20081215
  Receipt Date: 20081204
  Transmission Date: 20090506
  Serious: Yes (Hospitalization, Disabling)
  Sender: FDA-Public Use
  Company Number: US-EISAI MEDIAL RESEARCH-M7002-00418-CLI-US

PATIENT
  Sex: Female
  Weight: 61 kg

DRUGS (7)
  1. ONTAK [Suspect]
     Indication: PERIPHERAL T-CELL LYMPHOMA UNSPECIFIED
     Route: 042
     Dates: end: 20070523
  2. CYCLOPHOSPHAMIDE [Concomitant]
  3. DOXORUBICIN HCL [Concomitant]
  4. VINCRISTINE [Concomitant]
  5. PREDNISONE TAB [Concomitant]
  6. PANTOPRAZOLE SODIUM [Concomitant]
  7. VALACYCLOVIR HYDROCHLORIDE [Concomitant]

REACTIONS (1)
  - INFECTION [None]
